FAERS Safety Report 13800673 (Version 1)
Quarter: 2017Q3

REPORT INFORMATION
  Report Type: Spontaneous
  Country: CA (occurrence: CA)
  Receive Date: 20170727
  Receipt Date: 20170727
  Transmission Date: 20171127
  Serious: Yes (Other)
  Sender: FDA-Public Use
  Company Number: CA-MYLANLABS-16X-028-1267930-00

PATIENT

DRUGS (1)
  1. CLARITHROMYCIN. [Suspect]
     Active Substance: CLARITHROMYCIN
     Indication: PNEUMONIA
     Dosage: UNK
     Route: 048
     Dates: start: 201504, end: 201504

REACTIONS (4)
  - Palpitations [Unknown]
  - Bipolar disorder [Unknown]
  - Suicidal ideation [Unknown]
  - Insomnia [Unknown]

NARRATIVE: CASE EVENT DATE: 201504
